FAERS Safety Report 6092436-0 (Version None)
Quarter: 2009Q1

REPORT INFORMATION
  Report Type: 
  Country: None (occurrence: None)
  Receive Date: 20090225
  Receipt Date: 20090217
  Transmission Date: 20090719
  Serious: Yes (Hospitalization)
  Sender: FDA-Public Use
  Company Number: SE-PFIZER INC-2009160614

PATIENT

DRUGS (16)
  1. BLINDED *PLACEBO [Suspect]
     Indication: COLORECTAL CANCER
     Dosage: UNK
     Route: 048
     Dates: start: 20080728, end: 20081229
  2. BLINDED SUNITINIB MALATE [Suspect]
     Indication: COLORECTAL CANCER
     Dosage: UNK
     Route: 048
     Dates: start: 20080728, end: 20081229
  3. BLINDED *PLACEBO [Suspect]
     Dates: end: 20081229
  4. BLINDED SUNITINIB MALATE [Suspect]
     Dates: end: 20081229
  5. IRINOTECAN HCL [Suspect]
     Indication: COLORECTAL CANCER
     Dosage: 340 MG, UNK
     Route: 042
     Dates: start: 20080728, end: 20081229
  6. IRINOTECAN HCL [Suspect]
     Dates: end: 20081229
  7. FLUOROURACIL [Suspect]
     Indication: COLORECTAL CANCER
     Dosage: 800 MG, UNK
     Route: 042
     Dates: start: 20080728, end: 20081231
  8. FLUOROURACIL [Suspect]
     Dosage: 4750 UNK, UNK
     Dates: start: 20080728, end: 20081231
  9. CALCIUM FOLINATE [Suspect]
     Indication: COLORECTAL CANCER
     Dosage: 390 MG, UNK
     Dates: start: 20080728, end: 20081229
  10. PARACETAMOL [Concomitant]
     Dates: start: 20080710
  11. METOCLOPRAMIDE [Concomitant]
     Dates: start: 20080722
  12. ZOLPIDEM [Concomitant]
     Dates: start: 20080724
  13. GRANISETRON [Concomitant]
     Dates: start: 20080707, end: 20090120
  14. POTASSIUM CHLORIDE [Concomitant]
     Dates: start: 20080618
  15. INSULIN ASPART/PROTAMINE [Concomitant]
     Dates: start: 20080926
  16. OXYCODONE [Concomitant]

REACTIONS (1)
  - ILEUS [None]
